FAERS Safety Report 8818568 (Version 2)
Quarter: 2012Q4

REPORT INFORMATION
  Report Type: 
  Country: ZA (occurrence: ZA)
  Receive Date: 20121001
  Receipt Date: 20121018
  Transmission Date: 20130627
  Serious: Yes (Congenital Anomaly)
  Sender: FDA-Public Use
  Company Number: ZA-PFIZER INC-2012238507

PATIENT

DRUGS (1)
  1. PROSTIN E2 [Suspect]
     Dosage: 4 tablets (2mg) every 4 hours for three times
     Route: 064

REACTIONS (1)
  - Cerebral palsy [Unknown]
